FAERS Safety Report 7796409-9 (Version None)
Quarter: 2011Q4

REPORT INFORMATION
  Report Type: 
  Country: None (occurrence: None)
  Receive Date: 20111005
  Receipt Date: 20110926
  Transmission Date: 20120403
  Serious: No
  Sender: FDA-Public Use
  Company Number: US-BIOGENIDEC-2011BI037022

PATIENT
  Age: 60 Year
  Sex: Female

DRUGS (3)
  1. AVONEX [Concomitant]
     Route: 030
     Dates: start: 20090601
  2. AVONEX [Concomitant]
     Indication: MULTIPLE SCLEROSIS
     Route: 030
     Dates: start: 20090521
  3. TYSABRI [Suspect]
     Indication: MULTIPLE SCLEROSIS
     Route: 042
     Dates: start: 20110428

REACTIONS (2)
  - STRESS [None]
  - DEPRESSION [None]
